FAERS Safety Report 9173463 (Version 1)
Quarter: 2013Q1

REPORT INFORMATION
  Report Type: Spontaneous
  Country: DE (occurrence: None)
  Receive Date: 20130313
  Receipt Date: 20130313
  Transmission Date: 20140127
  Serious: Yes (Life-Threatening)
  Sender: FDA-Public Use
  Company Number: FK201300734

PATIENT
  Age: 6 Year
  Sex: Female

DRUGS (1)
  1. PROPOFOL [Suspect]
     Indication: GENERAL ANAESTHESIA
     Dates: start: 21030301, end: 20130301

REACTIONS (3)
  - Coma [None]
  - Malignant hypertension [None]
  - Muscle rigidity [None]
